FAERS Safety Report 4983176-7 (Version None)
Quarter: 2006Q2

REPORT INFORMATION
  Report Type: 
  Country: None (occurrence: None)
  Receive Date: 20060426
  Receipt Date: 20060324
  Transmission Date: 20061013
  Serious: Yes (Other)
  Sender: FDA-Public Use
  Company Number: CA-GLAXOSMITHKLINE-A0599567A

PATIENT
  Age: 64 Year
  Sex: Female
  Weight: 56.4 kg

DRUGS (2)
  1. AVANDIA [Suspect]
     Dosage: 4MG IN THE MORNING
     Route: 048
     Dates: start: 20060106, end: 20060321
  2. AVANDAMET [Suspect]
     Dates: start: 20050401, end: 20060101

REACTIONS (3)
  - HAEMOGLOBIN DECREASED [None]
  - HAEMOLYTIC ANAEMIA [None]
  - NAUSEA [None]
